FAERS Safety Report 9059347 (Version 1)
Quarter: 2013Q1

REPORT INFORMATION
  Report Type: Spontaneous
  Country: US (occurrence: US)
  Receive Date: 20130211
  Receipt Date: 20130211
  Transmission Date: 20140127
  Serious: Yes (Other)
  Sender: FDA-Public Use
  Company Number: US-BAYER-2012-125471

PATIENT
  Age: 69 Year
  Sex: Male
  Weight: 92.53 kg

DRUGS (54)
  1. XARELTO [Suspect]
     Indication: CEREBROVASCULAR ACCIDENT PROPHYLAXIS
     Dosage: 20 MG, UNK
     Route: 048
     Dates: start: 20121128, end: 201212
  2. XARELTO [Suspect]
     Indication: ATRIAL FIBRILLATION
  3. ACETYLSALICYLIC ACID [Suspect]
     Indication: PRODUCT USED FOR UNKNOWN INDICATION
     Dosage: 325 MG, QD
     Route: 048
     Dates: start: 20120626
  4. ACETYLSALICYLIC ACID [Suspect]
     Indication: PRODUCT USED FOR UNKNOWN INDICATION
     Dosage: 325 MG, QD
     Route: 048
     Dates: start: 20120417
  5. ACETYLSALICYLIC ACID [Suspect]
     Indication: PRODUCT USED FOR UNKNOWN INDICATION
     Dosage: 325 MG, QD
     Route: 048
     Dates: start: 20121022
  6. ACETYLSALICYLIC ACID [Suspect]
     Indication: PRODUCT USED FOR UNKNOWN INDICATION
     Dosage: 325 MG, QD
     Route: 048
     Dates: start: 20121124
  7. ACETYLSALICYLIC ACID [Suspect]
     Indication: PRODUCT USED FOR UNKNOWN INDICATION
     Dosage: 325 MG, QD
     Route: 048
     Dates: start: 20120319
  8. ACETYLSALICYLIC ACID [Suspect]
     Indication: PRODUCT USED FOR UNKNOWN INDICATION
     Dosage: 81 MG, QD
     Route: 048
  9. PLAVIX [Suspect]
     Indication: PRODUCT USED FOR UNKNOWN INDICATION
     Dosage: 75 MG, UNK
     Dates: start: 20120626
  10. PLAVIX [Suspect]
     Indication: PRODUCT USED FOR UNKNOWN INDICATION
     Dosage: 75 MG, QD
     Dates: start: 20121124
  11. PLAVIX [Suspect]
     Indication: PRODUCT USED FOR UNKNOWN INDICATION
     Dosage: 75 MG, QD
     Dates: start: 20121022
  12. METFORMIN [Concomitant]
     Dosage: 1000 MG, BID
     Dates: start: 20120626
  13. METFORMIN [Concomitant]
     Dosage: 1000 MG, BID
     Dates: start: 20120319
  14. METFORMIN [Concomitant]
     Dosage: 1000 MG, BID
     Dates: start: 20120417
  15. METFORMIN [Concomitant]
     Dosage: 1000 MG, BID
     Dates: start: 20121022
  16. METFORMIN [Concomitant]
     Dosage: 1000 MG, BID
     Dates: start: 20121124
  17. L-THYROXINE [Concomitant]
     Dosage: 175 MG, QD
     Dates: start: 20120319
  18. L-THYROXINE [Concomitant]
     Dosage: 175 MG, QD
     Dates: start: 20120417
  19. L-THYROXINE [Concomitant]
     Dosage: 150 MG, QD
     Dates: start: 20120626
  20. L-THYROXINE [Concomitant]
     Dosage: 125 MG, QD
     Dates: start: 20121022
  21. LISINOPRIL [Concomitant]
     Dosage: 20 MG, QD
     Dates: start: 20120626
  22. LISINOPRIL [Concomitant]
     Dosage: 20 MG, QD
     Dates: start: 20120417
  23. LISINOPRIL [Concomitant]
     Dosage: 20 MG, QD
     Dates: start: 20120319
  24. LISINOPRIL [Concomitant]
     Dosage: 20 MG, QD
     Dates: start: 20121022
  25. LISINOPRIL [Concomitant]
     Dosage: 20 MG, QD
     Dates: start: 20121124
  26. ACTOS [Concomitant]
     Dosage: 45 MG, QD
     Dates: start: 20121124
  27. ACTOS [Concomitant]
     Dosage: 45 MG, QD
     Dates: start: 20121022
  28. ACTOS [Concomitant]
     Dosage: 45 MG, QD
     Dates: start: 20120319
  29. ACTOS [Concomitant]
     Dosage: 45 MG, QD
     Dates: start: 20120417
  30. ACTOS [Concomitant]
     Dosage: 45 MG, QD
     Dates: start: 20120626
  31. JANUVIA [Concomitant]
     Dosage: 100 MG, QD
     Dates: start: 20121124
  32. JANUVIA [Concomitant]
     Dosage: 1000 MG, QD
     Dates: start: 20121022
  33. JANUVIA [Concomitant]
     Dosage: 100 MG, QD
     Dates: start: 20120626
  34. JANUVIA [Concomitant]
     Dosage: 100 MG, QD
     Dates: start: 20120417
  35. JANUVIA [Concomitant]
     Dosage: 100 MG, QD
     Dates: start: 20120319
  36. CRESTOR [Concomitant]
     Dosage: 10 MG, QD
     Dates: start: 20120626
  37. CRESTOR [Concomitant]
     Dosage: 10 MG, QD
     Dates: start: 20120319
  38. CRESTOR [Concomitant]
     Dosage: 10 MG, QD
     Dates: start: 20120417
  39. CRESTOR [Concomitant]
     Dosage: 10 MG, QD
     Dates: start: 20121022
  40. CRESTOR [Concomitant]
     Dosage: 10 MG, QD
     Dates: start: 20121124
  41. NIASPAN [Concomitant]
     Dosage: 1000 MG, QD
     Dates: start: 20120319
  42. ZETIA [Concomitant]
     Dates: start: 20120417
  43. ZETIA [Concomitant]
     Dosage: UNK
     Dates: start: 20121124
  44. VITAMIN D [Concomitant]
     Dates: start: 20121124
  45. NEXIUM [Concomitant]
     Dosage: 40 MG, QD
     Dates: start: 20120319
  46. NEXIUM [Concomitant]
     Dosage: 40 MG, QD
     Dates: start: 20121124
  47. NEXIUM [Concomitant]
     Dosage: 40 MG, QD
     Dates: start: 20120417
  48. NEXIUM [Concomitant]
     Dosage: 40 MG, QD
     Dates: start: 20120626
  49. NEXIUM [Concomitant]
     Dosage: 40 MG, QD
     Dates: start: 20121022
  50. CHLORTALIDONE [Concomitant]
     Dosage: 25 MG, QD
     Dates: start: 20121022
  51. CHLORTALIDONE [Concomitant]
     Dosage: 25 MG, QD
     Dates: start: 20120319
  52. CHLORTALIDONE [Concomitant]
     Dosage: 25 MG, QD
     Dates: start: 20120417
  53. CHLORTALIDONE [Concomitant]
     Dosage: 25 MG, QD
     Dates: start: 20120626
  54. CHLORTALIDONE [Concomitant]
     Dosage: 25 MG, QD
     Dates: start: 20121124

REACTIONS (1)
  - Haemorrhage urinary tract [Recovered/Resolved]
